FAERS Safety Report 8830912 (Version 1)
Quarter: 2012Q4

REPORT INFORMATION
  Report Type: 
  Country: US (occurrence: US)
  Receive Date: 20121008
  Receipt Date: 20121008
  Transmission Date: 20130627
  Serious: Yes (Other)
  Sender: FDA-Public Use
  Company Number: US-FRI-1000039114

PATIENT
  Age: 46 Year
  Sex: Female
  Weight: 62.1 kg

DRUGS (1)
  1. VIIBRYD [Suspect]
     Indication: MAJOR DEPRESSION
     Dosage: 20 mg
     Route: 048
     Dates: start: 20120622, end: 20120712

REACTIONS (3)
  - Suicidal ideation [Unknown]
  - Depression [Unknown]
  - Insomnia [Unknown]
